FAERS Safety Report 25391364 (Version 3)
Quarter: 2025Q3

REPORT INFORMATION
  Report Type: Spontaneous
  Country: EU (occurrence: EU)
  Receive Date: 20250603
  Receipt Date: 20250908
  Transmission Date: 20251021
  Serious: Yes (Life-Threatening, Hospitalization, Other)
  Sender: BRISTOL-MYERS SQUIBB COMPANY
  Company Number: EU-BRISTOL-MYERS SQUIBB COMPANY-2025-077625

PATIENT
  Age: 74 Year
  Sex: Male

DRUGS (2)
  1. NIVOLUMAB [Suspect]
     Active Substance: NIVOLUMAB
     Indication: Pleural mesothelioma
     Dates: start: 202312, end: 20250429
  2. NELVUTAMIG [Suspect]
     Active Substance: NELVUTAMIG
     Indication: Pleural mesothelioma
     Dates: start: 202312, end: 20250429

REACTIONS (9)
  - Loss of consciousness [Unknown]
  - Cardiac arrest [Unknown]
  - Aortic aneurysm [Unknown]
  - Gastrointestinal inflammation [Unknown]
  - Thyroid disorder [Unknown]
  - Renal failure [Unknown]
  - Intestinal obstruction [Unknown]
  - Autoimmune vasculitis [Unknown]
  - Cardiac failure [Unknown]

NARRATIVE: CASE EVENT DATE: 20250429
